FAERS Safety Report 18728497 (Version 1)
Quarter: 2021Q1

REPORT INFORMATION
  Report Type: Report from Study
  Country: CA (occurrence: CA)
  Receive Date: 20210111
  Receipt Date: 20210111
  Transmission Date: 20210419
  Serious: Yes (Other)
  Sender: FDA-Public Use
  Company Number: CA-ORION CORPORATION ORION PHARMA-21_00012507

PATIENT
  Sex: Male

DRUGS (6)
  1. CICLOSPORIN [Suspect]
     Active Substance: CYCLOSPORINE
     Indication: PSORIASIS
     Route: 065
  2. ENBREL [Concomitant]
     Active Substance: ETANERCEPT
     Route: 065
  3. METHOTREXATE (TRADE NAME UNKNOWN) [Suspect]
     Active Substance: METHOTREXATE
     Indication: PRODUCT USED FOR UNKNOWN INDICATION
     Route: 065
  4. HUMIRA [Concomitant]
     Active Substance: ADALIMUMAB
     Route: 065
  5. PSORALEN [Concomitant]
     Active Substance: PSORALEN
     Route: 065
  6. BETAMETHASONE DIPROPIONATE?CALCIPOTRIOL [Concomitant]
     Route: 065

REACTIONS (10)
  - Nausea [Unknown]
  - Pain of skin [Unknown]
  - Diarrhoea [Unknown]
  - Drug intolerance [Unknown]
  - Emotional distress [Unknown]
  - Psoriasis [Unknown]
  - Drug ineffective [Unknown]
  - Pruritus [Unknown]
  - Bradycardia [Unknown]
  - Self-consciousness [Unknown]
